FAERS Safety Report 17480184 (Version 1)
Quarter: 2020Q1

REPORT INFORMATION
  Report Type: Spontaneous
  Country: US (occurrence: US)
  Receive Date: 20200228
  Receipt Date: 20200228
  Transmission Date: 20200409
  Serious: Yes (Other)
  Sender: FDA-Public Use
  Company Number: US-SAMSUNG BIOEPIS-SB-2020-06728

PATIENT
  Age: 55 Year
  Sex: Female

DRUGS (12)
  1. ADALIMUMAB [Suspect]
     Active Substance: ADALIMUMAB
     Indication: COLITIS ULCERATIVE
     Dosage: UNKNOWN
     Route: 065
  2. VEDOLIZUMAB [Concomitant]
     Active Substance: VEDOLIZUMAB
     Indication: COLITIS ULCERATIVE
     Dosage: UNKNOWN
     Route: 065
  3. METHOTREXATE. [Concomitant]
     Active Substance: METHOTREXATE
     Indication: SPONDYLOARTHROPATHY
  4. MESALAMINE. [Concomitant]
     Active Substance: MESALAMINE
     Indication: SPONDYLOARTHROPATHY
  5. TOFACITINIB [Concomitant]
     Active Substance: TOFACITINIB
     Indication: SPONDYLOARTHROPATHY
  6. VEDOLIZUMAB [Concomitant]
     Active Substance: VEDOLIZUMAB
     Indication: SPONDYLOARTHROPATHY
     Dosage: UNKNOWN
     Route: 065
  7. MESALAMINE. [Concomitant]
     Active Substance: MESALAMINE
     Indication: COLITIS ULCERATIVE
     Dosage: UNKNOWN
     Route: 065
  8. INFLIXIMAB [Suspect]
     Active Substance: INFLIXIMAB
     Indication: SPONDYLITIS
  9. METHOTREXATE. [Concomitant]
     Active Substance: METHOTREXATE
     Indication: COLITIS ULCERATIVE
     Dosage: UNKNOWN
     Route: 065
  10. ADALIMUMAB [Suspect]
     Active Substance: ADALIMUMAB
     Indication: SPONDYLITIS
  11. INFLIXIMAB [Suspect]
     Active Substance: INFLIXIMAB
     Indication: COLITIS ULCERATIVE
     Dosage: UNKNOWN
     Route: 065
  12. TOFACITINIB [Concomitant]
     Active Substance: TOFACITINIB
     Indication: COLITIS ULCERATIVE
     Route: 065

REACTIONS (4)
  - Drug ineffective for unapproved indication [Unknown]
  - Colitis ulcerative [Recovered/Resolved]
  - Therapeutic product effect incomplete [Unknown]
  - Product use in unapproved indication [Unknown]
